FAERS Safety Report 24617197 (Version 1)
Quarter: 2024Q4

REPORT INFORMATION
  Report Type: Spontaneous
  Country: CN (occurrence: CN)
  Receive Date: 20241114
  Receipt Date: 20241114
  Transmission Date: 20250115
  Serious: Yes (Other)
  Sender: BAXTER
  Company Number: None

PATIENT
  Age: 46 Year
  Sex: Female
  Weight: 60 kg

DRUGS (14)
  1. CYCLOPHOSPHAMIDE [Suspect]
     Active Substance: CYCLOPHOSPHAMIDE
     Indication: Breast cancer female
     Dosage: 900 MG, ONE TIME IN ONE DAY, DILUTED WITH 250 ML OF 0.9% SODIUM CHLORIDE (NORMAL SALINE), CHEMOTHERA
     Route: 041
     Dates: start: 20240828, end: 20240828
  2. CYCLOPHOSPHAMIDE [Suspect]
     Active Substance: CYCLOPHOSPHAMIDE
     Dosage: 900 MG, ONE TIME IN ONE DAY, DILUTED WITH 250 ML OF 0.9% SODIUM CHLORIDE (NORMAL SALINE), THIRD CYCL
     Route: 041
     Dates: start: 20240911
  3. CYCLOPHOSPHAMIDE [Suspect]
     Active Substance: CYCLOPHOSPHAMIDE
     Dosage: 900 MG, ONE TIME IN ONE DAY, DILUTED WITH 250 ML OF 0.9% SODIUM CHLORIDE (NORMAL SALINE), THIRD CYCL
     Route: 041
     Dates: start: 20240925
  4. EPIRUBICIN HYDROCHLORIDE [Suspect]
     Active Substance: EPIRUBICIN HYDROCHLORIDE
     Indication: Breast cancer female
     Dosage: 140 MG, ONE TIME IN ONE DAY, DILUTED WITH 250 ML OF 0.9% SODIUM CHLORIDE (NORMAL SALINE), CHEMOTHERA
     Route: 041
     Dates: start: 20240928, end: 20240928
  5. EPIRUBICIN HYDROCHLORIDE [Suspect]
     Active Substance: EPIRUBICIN HYDROCHLORIDE
     Dosage: 140 MG, ONE TIME IN ONE DAY, DILUTED WITH 250 ML OF 0.9% SODIUM CHLORIDE (NORMAL SALINE), THIRD CYCL
     Route: 041
     Dates: start: 20240911
  6. EPIRUBICIN HYDROCHLORIDE [Suspect]
     Active Substance: EPIRUBICIN HYDROCHLORIDE
     Dosage: 140 MG, ONE TIME IN ONE DAY, DILUTED WITH 250 ML OF 0.9% SODIUM CHLORIDE (NORMAL SALINE), THIRD CYCL
     Route: 041
     Dates: start: 20240925
  7. SODIUM CHLORIDE [Suspect]
     Active Substance: SODIUM CHLORIDE
     Indication: Medication dilution
     Dosage: 250 ML (NORMAL SALINE), ONE TIME IN ONE DAY, STRENGTH: 0.9%, USED TO DILUTE 900 MG OF CYCLOPHOSPHAMI
     Route: 041
     Dates: start: 20240928, end: 20240928
  8. SODIUM CHLORIDE [Suspect]
     Active Substance: SODIUM CHLORIDE
     Dosage: 250 ML (NORMAL SALINE), ONE TIME IN ONE DAY, STRENGTH: 0.9%, USED TO DILUTE 140 MG OF EPIRUBICIN HYD
     Route: 041
     Dates: start: 20240928, end: 20240928
  9. SODIUM CHLORIDE [Suspect]
     Active Substance: SODIUM CHLORIDE
     Dosage: 250 ML (NORMAL SALINE), ONE TIME IN ONE DAY, STRENGTH: 0.9%, USED TO DILUTE 900 MG OF CYCLOPHOSPHAMI
     Route: 041
     Dates: start: 20240911
  10. SODIUM CHLORIDE [Suspect]
     Active Substance: SODIUM CHLORIDE
     Dosage: 250 ML (NORMAL SALINE), ONE TIME IN ONE DAY, STRENGTH: 0.9%, USED TO DILUTE 140 MG OF EPIRUBICIN HYD
     Route: 041
     Dates: start: 20240911
  11. SODIUM CHLORIDE [Suspect]
     Active Substance: SODIUM CHLORIDE
     Dosage: 250 ML (NORMAL SALINE), ONE TIME IN ONE DAY, STRENGTH: 0.9%, USED TO DILUTE 900 MG OF CYCLOPHOSPHAMI
     Route: 041
     Dates: start: 20240925
  12. SODIUM CHLORIDE [Suspect]
     Active Substance: SODIUM CHLORIDE
     Dosage: 250 ML (NORMAL SALINE), ONE TIME IN ONE DAY, STRENGTH: 0.9%, USED TO DILUTE 140 MG OF EPIRUBICIN HYD
     Route: 041
     Dates: start: 20240925
  13. SILIBININ [Suspect]
     Active Substance: SILIBININ
     Indication: Symptomatic treatment
     Dosage: 0.2 G, TID FOR 7 DAYS
     Route: 048
     Dates: start: 20240911
  14. SILIBININ [Suspect]
     Active Substance: SILIBININ
     Dosage: 0.2 G, TID FOR 7 DAYS
     Route: 048
     Dates: start: 20240925

REACTIONS (2)
  - Drug-induced liver injury [Recovering/Resolving]
  - Hepatic enzyme increased [Recovering/Resolving]

NARRATIVE: CASE EVENT DATE: 20240910
